FAERS Safety Report 23750672 (Version 1)
Quarter: 2024Q2

REPORT INFORMATION
  Report Type: Spontaneous
  Country: DE (occurrence: DE)
  Receive Date: 20240417
  Receipt Date: 20240417
  Transmission Date: 20240716
  Serious: Yes (Other)
  Sender: FDA-Public Use
  Company Number: DE-002147023-NVSC2023DE118195

PATIENT
  Sex: Female

DRUGS (3)
  1. GLIVEC [Suspect]
     Active Substance: IMATINIB MESYLATE
     Indication: Chronic myeloid leukaemia
     Dosage: 400 MG, QD (IN THE EVENING)
     Route: 065
     Dates: start: 2011
  2. GLIVEC [Suspect]
     Active Substance: IMATINIB MESYLATE
     Dosage: 400 MG, QD (IN THE EVENING)
     Route: 065
     Dates: end: 2020
  3. GLIVEC [Suspect]
     Active Substance: IMATINIB MESYLATE
     Dosage: 400 MG
     Route: 065
     Dates: start: 20240411

REACTIONS (6)
  - Chronic myeloid leukaemia [Unknown]
  - Foreign body in throat [Unknown]
  - Abdominal discomfort [Unknown]
  - Mucosal dryness [Unknown]
  - Dysphagia [Unknown]
  - Wrong technique in product usage process [Unknown]
